FAERS Safety Report 21907994 (Version 2)
Quarter: 2023Q1

REPORT INFORMATION
  Report Type: Spontaneous
  Country: US (occurrence: US)
  Receive Date: 20230125
  Receipt Date: 20230210
  Transmission Date: 20230417
  Serious: Yes (Hospitalization, Other)
  Sender: FDA-Public Use
  Company Number: US-Accord-298042

PATIENT
  Age: 67 Year
  Sex: Male
  Weight: 56.70 kg

DRUGS (15)
  1. CARBOPLATIN [Suspect]
     Active Substance: CARBOPLATIN
     Indication: Small cell lung cancer extensive stage
     Dosage: IV DRIP
     Route: 042
     Dates: start: 20221122, end: 20221122
  2. ATEZOLIZUMAB [Suspect]
     Active Substance: ATEZOLIZUMAB
     Indication: Small cell lung cancer extensive stage
     Dosage: STRENGTH: 10 MG/ML; IV DRIP
     Route: 042
     Dates: start: 20221125, end: 20221125
  3. ETOPOSIDE [Suspect]
     Active Substance: ETOPOSIDE
     Indication: Small cell lung cancer extensive stage
     Dosage: INTRAVENOUS DRIP; DAY 1 TO DAY 3,
     Route: 042
     Dates: start: 20221122, end: 20221124
  4. ALLOPURINOL [Concomitant]
     Active Substance: ALLOPURINOL
     Indication: Small cell lung cancer extensive stage
     Dosage: 300MG
     Route: 048
     Dates: start: 20221107
  5. ZOFRAN [Concomitant]
     Active Substance: ONDANSETRON HYDROCHLORIDE
     Route: 042
     Dates: start: 20221122
  6. DECADRON [Concomitant]
     Active Substance: DEXAMETHASONE
     Route: 042
     Dates: start: 20221122
  7. ZOFRAN [Concomitant]
     Active Substance: ONDANSETRON HYDROCHLORIDE
     Route: 042
     Dates: start: 20221123
  8. DECADRON [Concomitant]
     Active Substance: DEXAMETHASONE
     Route: 042
     Dates: start: 20221123
  9. ATEZOLIZUMAB [Suspect]
     Active Substance: ATEZOLIZUMAB
     Indication: Small cell lung cancer extensive stage
     Dosage: STRENGTH: 10 MG/ML; IV DRIP
     Route: 042
     Dates: start: 20221215, end: 20221215
  10. CARBOPLATIN [Suspect]
     Active Substance: CARBOPLATIN
     Indication: Small cell lung cancer extensive stage
     Dosage: IV DRIP
     Route: 042
     Dates: start: 20221213, end: 20221213
  11. ZOFRAN [Concomitant]
     Active Substance: ONDANSETRON HYDROCHLORIDE
     Route: 042
     Dates: start: 20221125
  12. ZOFRAN [Concomitant]
     Active Substance: ONDANSETRON HYDROCHLORIDE
     Route: 042
     Dates: start: 20221213, end: 20221215
  13. DECADRON [Concomitant]
     Active Substance: DEXAMETHASONE
     Route: 042
     Dates: start: 20221125
  14. DECADRON [Concomitant]
     Active Substance: DEXAMETHASONE
     Route: 042
     Dates: start: 20221213, end: 20221215
  15. ETOPOSIDE [Suspect]
     Active Substance: ETOPOSIDE
     Indication: Small cell lung cancer extensive stage
     Dosage: INTRAVENOUS DRIP; DAY 1 TO DAY 3,
     Route: 042
     Dates: start: 20221213, end: 20221215

REACTIONS (1)
  - Atrial fibrillation [Recovered/Resolved]

NARRATIVE: CASE EVENT DATE: 20221227
